FAERS Safety Report 20822560 (Version 2)
Quarter: 2022Q2

REPORT INFORMATION
  Report Type: Spontaneous
  Country: US (occurrence: US)
  Receive Date: 20220512
  Receipt Date: 20220630
  Transmission Date: 20220721
  Serious: Yes (Hospitalization)
  Sender: FDA-Public Use
  Company Number: US-PFIZER INC-202200676625

PATIENT
  Age: 77 Year
  Sex: Female

DRUGS (4)
  1. LIOTHYRONINE SODIUM [Suspect]
     Active Substance: LIOTHYRONINE SODIUM
     Indication: Hypothyroidism
     Dosage: UNK
  2. CYTOMEL [Suspect]
     Active Substance: LIOTHYRONINE SODIUM
     Indication: Hypothyroidism
     Dosage: 25 UG (25MCG ONE DAY, 25 MCG NEXT DAY AND 37.5MCG THE THIRD DAY AND THEN BACK TO 25MCG)
  3. CYTOMEL [Suspect]
     Active Substance: LIOTHYRONINE SODIUM
     Dosage: 35.7 UG (37.5MCG THE THIRD DAY)
  4. CYTOMEL [Suspect]
     Active Substance: LIOTHYRONINE SODIUM
     Dosage: 2 DF, DAILY (2 TABS A DAY AT SOME POINTS)

REACTIONS (12)
  - Fall [Unknown]
  - Joint injury [Unknown]
  - Heart rate increased [Unknown]
  - Limb discomfort [Unknown]
  - Abdominal discomfort [Unknown]
  - Blood cholesterol increased [Unknown]
  - Tri-iodothyronine increased [Unknown]
  - High density lipoprotein decreased [Unknown]
  - Malaise [Unknown]
  - Back injury [Unknown]
  - Weight fluctuation [Unknown]
  - Body height decreased [Unknown]

NARRATIVE: CASE EVENT DATE: 20180701
